FAERS Safety Report 14967244 (Version 1)
Quarter: 2018Q2

REPORT INFORMATION
  Report Type: Spontaneous
  Country: AU (occurrence: AU)
  Receive Date: 20180604
  Receipt Date: 20180604
  Transmission Date: 20180711
  Serious: Yes (Death, Other)
  Sender: FDA-Public Use
  Company Number: AU-CHEPLA-C20180254

PATIENT
  Age: 59 Year
  Sex: Male

DRUGS (14)
  1. PREDNISOLONE. [Suspect]
     Active Substance: PREDNISOLONE
     Indication: ACUTE MYELOID LEUKAEMIA
     Dosage: 1 MG/KG, QD (D1-10)
     Route: 065
     Dates: start: 20160303
  2. IDARUBICIN [Suspect]
     Active Substance: IDARUBICIN
     Dosage: 12 MG/M2, UNK (D2,4,6,8)
     Route: 042
     Dates: start: 20160303
  3. IDARUBICIN [Suspect]
     Active Substance: IDARUBICIN
     Dosage: 12 MG/M2, QD (DAY 1- 2)
     Route: 042
     Dates: start: 20150909
  4. POSACONAZOLE [Suspect]
     Active Substance: POSACONAZOLE
     Dosage: 300 MG, QD
     Route: 065
     Dates: start: 20160303
  5. TRETINOIN. [Suspect]
     Active Substance: TRETINOIN
     Indication: ACUTE MYELOID LEUKAEMIA
     Dosage: 45 MG/M2, QD (D1-36)
     Route: 065
     Dates: start: 20160303
  6. IDARUBICIN [Suspect]
     Active Substance: IDARUBICIN
     Dosage: 12 MG/M2, QD (DAY 1- 2)
     Route: 042
     Dates: start: 20151012
  7. CYTARABINE. [Suspect]
     Active Substance: CYTARABINE
     Dosage: 1000 MG/M2, BID (DAY 1, 3 AND 5)
     Route: 042
     Dates: start: 20151012
  8. ARSENIC [Suspect]
     Active Substance: ARSENIC
     Indication: ACUTE MYELOID LEUKAEMIA
     Dosage: 0.15 MG/KG, UNK (D9-36)
     Route: 042
     Dates: start: 20160303
  9. IDARUBICIN [Suspect]
     Active Substance: IDARUBICIN
     Indication: ACUTE MYELOID LEUKAEMIA
     Dosage: 12 MG/M2, QD (DAY 1 - 3)
     Route: 042
     Dates: start: 20150807
  10. CYTARABINE. [Suspect]
     Active Substance: CYTARABINE
     Dosage: 1000 MG/M2, BID (DAY 1, 3 AND 5)
     Route: 042
     Dates: start: 20150909
  11. POSACONAZOLE [Suspect]
     Active Substance: POSACONAZOLE
     Indication: PRODUCT USED FOR UNKNOWN INDICATION
     Dosage: 200 MG, QID
     Route: 065
     Dates: start: 20150807
  12. POSACONAZOLE [Suspect]
     Active Substance: POSACONAZOLE
     Dosage: 200 MG, QID
     Route: 065
     Dates: start: 20150909
  13. POSACONAZOLE [Suspect]
     Active Substance: POSACONAZOLE
     Dosage: 300 MG, UNK
     Route: 065
     Dates: start: 20151012
  14. CYTARABINE. [Suspect]
     Active Substance: CYTARABINE
     Indication: ACUTE MYELOID LEUKAEMIA
     Dosage: 100 MG/M2, QD (DAY 1-7)
     Route: 042
     Dates: start: 20150807

REACTIONS (2)
  - Acute myeloid leukaemia recurrent [Not Recovered/Not Resolved]
  - Death [Fatal]

NARRATIVE: CASE EVENT DATE: 20160406
